FAERS Safety Report 5665554-6 (Version None)
Quarter: 2008Q1

REPORT INFORMATION
  Report Type: 
  Country: None (occurrence: None)
  Receive Date: 20080314
  Receipt Date: 20071212
  Transmission Date: 20080703
  Serious: No
  Sender: FDA-Public Use
  Company Number: US-ABBOTT-07P-163-0428503-00

PATIENT
  Sex: Female
  Weight: 129.5 kg

DRUGS (5)
  1. HUMIRA [Suspect]
     Indication: RHEUMATOID ARTHRITIS
     Route: 058
     Dates: start: 20070201, end: 20070801
  2. WELLBUTRIN [Concomitant]
     Indication: ANXIETY
     Route: 048
  3. THYROID TAB [Concomitant]
     Indication: HYPOTHYROIDISM
     Route: 048
  4. FLINSTONE VITAMINS [Concomitant]
     Indication: VITAMIN SUPPLEMENTATION
     Route: 048
  5. PARACETAMOL [Concomitant]
     Indication: RHEUMATOID ARTHRITIS
     Route: 048

REACTIONS (1)
  - DRUG INEFFECTIVE [None]
